FAERS Safety Report 12086683 (Version 1)
Quarter: 2016Q1

REPORT INFORMATION
  Report Type: Spontaneous
  Country: US (occurrence: US)
  Receive Date: 20160217
  Receipt Date: 20160217
  Transmission Date: 20160526
  Serious: No
  Sender: FDA-Public Use
  Company Number: US-ALLERGAN-1502825US

PATIENT
  Sex: Female

DRUGS (2)
  1. RESTASIS [Suspect]
     Active Substance: CYCLOSPORINE
     Indication: DRY EYE
     Dosage: 2 GTT, BID
     Route: 047
     Dates: start: 2000, end: 20150206
  2. FRESH TEARS [Concomitant]
     Dosage: UNK UNK, BID
     Route: 047

REACTIONS (2)
  - Multiple use of single-use product [Unknown]
  - Vision blurred [Unknown]
